FAERS Safety Report 10148917 (Version 3)
Quarter: 2015Q1

REPORT INFORMATION
  Report Type: Report from Study
  Country: FR (occurrence: FR)
  Receive Date: 20140502
  Receipt Date: 20150219
  Transmission Date: 20150720
  Serious: Yes (Hospitalization, Other)
  Sender: FDA-Public Use
  Company Number: FR-ROCHE-1162568

PATIENT
  Age: 50 Year
  Sex: Female

DRUGS (9)
  1. RITUXIMAB [Suspect]
     Active Substance: RITUXIMAB
     Route: 065
     Dates: start: 20050715
  2. RITUXIMAB [Suspect]
     Active Substance: RITUXIMAB
     Route: 065
     Dates: start: 20091113
  3. RITUXIMAB [Suspect]
     Active Substance: RITUXIMAB
     Indication: RHEUMATOID ARTHRITIS
     Route: 065
     Dates: start: 20050701
  4. ORENCIA [Concomitant]
     Active Substance: ABATACEPT
  5. RITUXIMAB [Suspect]
     Active Substance: RITUXIMAB
     Route: 065
     Dates: start: 20061219
  6. RITUXIMAB [Suspect]
     Active Substance: RITUXIMAB
     Route: 065
     Dates: start: 20071130
  7. RITUXIMAB [Suspect]
     Active Substance: RITUXIMAB
     Route: 065
     Dates: start: 20080916
  8. RITUXIMAB [Suspect]
     Active Substance: RITUXIMAB
     Route: 065
     Dates: start: 20071214
  9. RITUXIMAB [Suspect]
     Active Substance: RITUXIMAB
     Route: 065
     Dates: start: 20091029

REACTIONS (24)
  - Cytopenia [Recovered/Resolved]
  - Infection [Unknown]
  - Vertigo [Not Recovered/Not Resolved]
  - Neutropenia [Unknown]
  - Rhinitis [Recovered/Resolved]
  - Migraine [Recovered/Resolved]
  - Weight decreased [Recovered/Resolved]
  - Pyrexia [Recovered/Resolved]
  - Headache [Recovered/Resolved]
  - Ear infection [Recovered/Resolved]
  - Pharyngitis [Recovered/Resolved]
  - Gastrointestinal motility disorder [Recovered/Resolved]
  - Hypogammaglobulinaemia [Not Recovered/Not Resolved]
  - General physical health deterioration [Recovered/Resolved]
  - Genital herpes zoster [Recovered/Resolved]
  - Rash pustular [Recovered/Resolved]
  - Rhinitis [Recovered/Resolved]
  - Sinusitis [Recovered/Resolved]
  - Asthenia [Recovered/Resolved]
  - Papule [Recovered/Resolved]
  - Bronchitis [Recovered/Resolved]
  - Decreased appetite [Recovered/Resolved]
  - Aspartate aminotransferase increased [Unknown]
  - Asthenia [Recovered/Resolved]

NARRATIVE: CASE EVENT DATE: 20061122
